FAERS Safety Report 21160863 (Version 1)
Quarter: 2022Q3

REPORT INFORMATION
  Report Type: Spontaneous
  Country: US (occurrence: US)
  Receive Date: 20220802
  Receipt Date: 20220802
  Transmission Date: 20221027
  Serious: Yes (Hospitalization, Other)
  Sender: FDA-Public Use
  Company Number: US-drreddys-SPO/USA/22/0152943

PATIENT
  Age: 65 Year
  Sex: Male

DRUGS (1)
  1. HEPARIN SODIUM [Suspect]
     Active Substance: HEPARIN SODIUM
     Indication: Thrombosis prophylaxis
     Dosage: LOW-DOSE

REACTIONS (5)
  - Disorientation [Recovered/Resolved]
  - Anaphylactic reaction [Recovered/Resolved]
  - Dysarthria [Recovered/Resolved]
  - Heparin-induced thrombocytopenia [Recovered/Resolved]
  - Pyrexia [Recovered/Resolved]
